FAERS Safety Report 9977916 (Version 1)
Quarter: 2014Q1

REPORT INFORMATION
  Report Type: Report from Study
  Country: US (occurrence: US)
  Receive Date: 20140306
  Receipt Date: 20140306
  Transmission Date: 20141002
  Serious: No
  Sender: FDA-Public Use
  Company Number: US-ABBVIE-13P-163-1161705-00

PATIENT
  Age: 61 Year
  Sex: Female

DRUGS (10)
  1. HUMIRA [Suspect]
     Indication: CROHN^S DISEASE
     Route: 058
     Dates: start: 20130911, end: 20130911
  2. HUMIRA [Suspect]
     Route: 058
     Dates: start: 20130925, end: 20130925
  3. HUMIRA [Suspect]
     Route: 058
     Dates: start: 20131018
  4. PENTASA [Concomitant]
     Indication: OSTEOPOROSIS
  5. FLAGYL [Concomitant]
     Indication: FISTULA
  6. PREDNISONE [Concomitant]
     Indication: PRODUCT USED FOR UNKNOWN INDICATION
  7. NEXIUM [Concomitant]
     Indication: GASTROOESOPHAGEAL REFLUX DISEASE
  8. CALCIUM [Concomitant]
     Indication: OSTEOPOROSIS
     Dosage: 500+ TWICE DAILY
  9. VITAMIN D [Concomitant]
     Indication: OSTEOPOROSIS
  10. RECLAST [Concomitant]
     Indication: OSTEOPOROSIS
     Dosage: MOST RECENTLY 02 JUL 2013

REACTIONS (7)
  - Oropharyngeal pain [Not Recovered/Not Resolved]
  - Lymphadenopathy [Recovered/Resolved]
  - Ear discomfort [Recovered/Resolved]
  - Headache [Recovered/Resolved]
  - Eye irritation [Recovered/Resolved]
  - Eye pain [Recovered/Resolved]
  - Stomatitis [Not Recovered/Not Resolved]
